FAERS Safety Report 24203252 (Version 2)
Quarter: 2024Q4

REPORT INFORMATION
  Report Type: Spontaneous
  Country: US (occurrence: US)
  Receive Date: 20240813
  Receipt Date: 20241101
  Transmission Date: 20250115
  Serious: No
  Sender: Tarsus Pharmaceuticals
  Company Number: US-TARSUS PHARMACEUTICALS-TSP-US-2024-000310

PATIENT
  Sex: Male

DRUGS (3)
  1. XDEMVY [Suspect]
     Active Substance: LOTILANER
     Indication: Blepharitis
     Dosage: UNK (6 WEEKS)
     Route: 065
     Dates: start: 20240515, end: 20240711
  2. XDEMVY [Suspect]
     Active Substance: LOTILANER
     Indication: Eyelid margin crusting
  3. TEA TREE OIL [Concomitant]
     Active Substance: TEA TREE OIL
     Indication: Product used for unknown indication
     Dosage: UNK (WIPES)
     Route: 065

REACTIONS (2)
  - Influenza like illness [Recovered/Resolved]
  - Product use issue [Unknown]

NARRATIVE: CASE EVENT DATE: 20240101
